FAERS Safety Report 9632955 (Version 1)
Quarter: 2013Q4

REPORT INFORMATION
  Report Type: Spontaneous
  Country: DE (occurrence: DE)
  Receive Date: 20131018
  Receipt Date: 20131018
  Transmission Date: 20140711
  Serious: Yes (Death, Life-Threatening, Hospitalization)
  Sender: FDA-Public Use
  Company Number: DE-BRISTOL-MYERS SQUIBB COMPANY-19595149

PATIENT
  Age: 51 Year
  Sex: Male
  Weight: 112 kg

DRUGS (13)
  1. CETUXIMAB [Suspect]
     Indication: COLON CANCER METASTATIC
     Route: 042
     Dates: start: 20110411, end: 20110907
  2. XELODA [Suspect]
     Indication: COLORECTAL CANCER METASTATIC
     Route: 048
     Dates: start: 20100914, end: 20100918
  3. AVASTIN [Suspect]
     Indication: COLORECTAL CANCER METASTATIC
     Route: 042
     Dates: start: 20100914, end: 20100918
  4. IRINOTECAN HCL [Suspect]
     Indication: COLORECTAL CANCER METASTATIC
     Route: 042
     Dates: start: 20100914, end: 20110907
  5. KEVATRIL [Concomitant]
     Route: 042
  6. MINOCYCLINE [Concomitant]
     Indication: ACNE
     Route: 048
     Dates: start: 20110517, end: 20111105
  7. IBUPROFEN [Concomitant]
     Indication: PAIN
     Route: 048
     Dates: start: 201110, end: 20111102
  8. OMEPRAZOLE [Concomitant]
     Indication: PROPHYLAXIS AGAINST GASTROINTESTINAL ULCER
     Route: 048
  9. MACROGOL [Concomitant]
  10. NALOXONE [Concomitant]
  11. OXYCODONE HCL [Concomitant]
  12. TARGIN [Concomitant]
     Indication: PAIN
     Route: 048
     Dates: start: 201110, end: 20111105
  13. POLYETHYLENE GLYCOL [Concomitant]

REACTIONS (3)
  - Gastrointestinal perforation [Fatal]
  - Malignant neoplasm progression [Unknown]
  - Rash [Recovered/Resolved]
